FAERS Safety Report 7117963-6 (Version None)
Quarter: 2010Q4

REPORT INFORMATION
  Report Type: 
  Country: None (occurrence: None)
  Receive Date: 20101118
  Receipt Date: 20101118
  Transmission Date: 20110411
  Serious: No
  Sender: FDA-Public Use
  Company Number: None

PATIENT
  Age: 79 Year
  Sex: Male
  Weight: 64.8644 kg

DRUGS (2)
  1. SULFAMETH 800/160 AMNEAL [Suspect]
  2. SEE PRECEDING INFO [Concomitant]

REACTIONS (7)
  - ASTHENIA [None]
  - DISCOMFORT [None]
  - HEADACHE [None]
  - MUSCLE CONTRACTIONS INVOLUNTARY [None]
  - MUSCULAR WEAKNESS [None]
  - NEUROPATHY PERIPHERAL [None]
  - PYREXIA [None]
